FAERS Safety Report 16409639 (Version 3)
Quarter: 2019Q3

REPORT INFORMATION
  Report Type: Spontaneous
  Country: DE (occurrence: DE)
  Receive Date: 20190610
  Receipt Date: 20190708
  Transmission Date: 20191004
  Serious: Yes (Other)
  Sender: FDA-Public Use
  Company Number: DE-PFIZER INC-2019236114

PATIENT
  Age: 64 Year
  Sex: Male
  Weight: 108 kg

DRUGS (2)
  1. RAMIPRIL. [Suspect]
     Active Substance: RAMIPRIL
     Dosage: UNK
     Route: 065
     Dates: start: 201905
  2. METOPROLOL [METOPROLOL TARTRATE] [Suspect]
     Active Substance: METOPROLOL TARTRATE
     Dosage: UNK
     Route: 065
     Dates: start: 201905

REACTIONS (2)
  - Dyspnoea [Unknown]
  - Lung disorder [Unknown]
